FAERS Safety Report 13708974 (Version 8)
Quarter: 2017Q4

REPORT INFORMATION
  Report Type: Report from Study
  Country: US (occurrence: US)
  Receive Date: 20170701
  Receipt Date: 20171206
  Transmission Date: 20180320
  Serious: Yes (Death, Hospitalization, Other)
  Sender: FDA-Public Use
  Company Number: US-AMGEN-USASL2017097245

PATIENT
  Age: 82 Year
  Sex: Female
  Weight: 46.71 kg

DRUGS (2)
  1. PROLIA [Suspect]
     Active Substance: DENOSUMAB
     Indication: OSTEOPOROSIS POSTMENOPAUSAL
     Dosage: 60 MG, Q6MO
     Route: 058
     Dates: start: 20160720
  2. PROLIA [Suspect]
     Active Substance: DENOSUMAB
     Indication: OSTEOPOROSIS
     Dosage: UNK
     Route: 058
     Dates: start: 20170317

REACTIONS (10)
  - Sepsis [Unknown]
  - Blood calcium decreased [Recovered/Resolved]
  - Death [Fatal]
  - Pelvic fracture [Unknown]
  - Femur fracture [Unknown]
  - Vitamin D decreased [Unknown]
  - Inappropriate schedule of drug administration [Unknown]
  - Femoral neck fracture [Unknown]
  - Fall [Unknown]
  - Hip fracture [Unknown]

NARRATIVE: CASE EVENT DATE: 20170412
